FAERS Safety Report 5236507-7 (Version None)
Quarter: 2007Q1

REPORT INFORMATION
  Report Type: 
  Country: None (occurrence: None)
  Receive Date: 20070212
  Receipt Date: 20070205
  Transmission Date: 20070707
  Serious: Yes (Life-Threatening)
  Sender: FDA-Public Use
  Company Number: ES-MERCK-0702ESP00012

PATIENT
  Age: 54 Year
  Sex: Male

DRUGS (9)
  1. INVANZ [Suspect]
     Indication: CELLULITIS
     Route: 042
     Dates: start: 20070101, end: 20070201
  2. OXYCODONE [Suspect]
     Route: 065
  3. FENTANYL [Suspect]
     Route: 065
  4. CITALOPRAM [Suspect]
     Route: 065
     Dates: start: 20050101, end: 20070101
  5. CITALOPRAM [Suspect]
     Route: 065
     Dates: end: 20070101
  6. AMITRIPTYLINE HYDROCHLORIDE [Concomitant]
     Route: 065
  7. GABAPENTIN [Concomitant]
     Route: 065
  8. CLONAZEPAM [Concomitant]
     Route: 065
  9. [THERAPY UNSPECIFIED] [Concomitant]
     Route: 065

REACTIONS (1)
  - SEROTONIN SYNDROME [None]
